FAERS Safety Report 14599713 (Version 1)
Quarter: 2018Q1

REPORT INFORMATION
  Report Type: Other
  Country: FR (occurrence: FR)
  Receive Date: 20180305
  Receipt Date: 20180305
  Transmission Date: 20180509
  Serious: Yes (Life-Threatening, Hospitalization)
  Sender: FDA-Public Use
  Company Number: FR-GLENMARK PHARMACEUTICALS-2018GMK032722

PATIENT

DRUGS (8)
  1. FENOFIBRATE. [Suspect]
     Active Substance: FENOFIBRATE
     Indication: DYSLIPIDAEMIA
     Dosage: 160 MG, OD
     Route: 048
     Dates: end: 20180131
  2. TEMESTA                            /00273201/ [Suspect]
     Active Substance: LORAZEPAM
     Indication: SLEEP DISORDER THERAPY
     Dosage: 2.5 MG, UNK
     Route: 048
     Dates: end: 20180131
  3. RIFADINE                           /00146901/ [Suspect]
     Active Substance: RIFAMPIN
     Indication: POST PROCEDURAL INFECTION
     Dosage: 1200 MG, UNK
     Route: 065
     Dates: start: 20180111
  4. INEXIUM                            /01479302/ [Suspect]
     Active Substance: ESOMEPRAZOLE MAGNESIUM
     Indication: PRODUCT USED FOR UNKNOWN INDICATION
     Dosage: 20 MG, UNK
     Route: 048
     Dates: end: 20180131
  5. BACTRIM [Suspect]
     Active Substance: SULFAMETHOXAZOLE\TRIMETHOPRIM
     Indication: POST PROCEDURAL INFECTION
     Dosage: 3 DF, UNK
     Route: 048
     Dates: start: 20180109
  6. VANCOMYCINE [Suspect]
     Active Substance: VANCOMYCIN
     Indication: POST PROCEDURAL INFECTION
     Dosage: 2 G, UNK
     Route: 042
     Dates: start: 20180103
  7. LYRICA [Suspect]
     Active Substance: PREGABALIN
     Indication: PRODUCT USED FOR UNKNOWN INDICATION
     Dosage: 150 MG, UNK
     Route: 048
     Dates: end: 20180131
  8. PARACETAMOL [Suspect]
     Active Substance: ACETAMINOPHEN
     Indication: GAIT DISTURBANCE
     Dosage: 3 G, UNK
     Route: 065

REACTIONS (5)
  - Hepatitis [Recovered/Resolved]
  - Eosinophilia [Not Recovered/Not Resolved]
  - Abdominal pain [Recovered/Resolved]
  - Rash [Recovering/Resolving]
  - Pyrexia [Recovered/Resolved]

NARRATIVE: CASE EVENT DATE: 20180127
